FAERS Safety Report 4702675-6 (Version None)
Quarter: 2005Q2

REPORT INFORMATION
  Report Type: 
  Country: None (occurrence: None)
  Receive Date: 20050629
  Receipt Date: 20041201
  Transmission Date: 20051028
  Serious: No
  Sender: FDA-Public Use
  Company Number: US-GLAXOSMITHKLINE-A0535782A

PATIENT
  Sex: Male

DRUGS (1)
  1. ZYBAN [Suspect]
     Route: 048

REACTIONS (3)
  - BALANCE DISORDER [None]
  - DIFFICULTY IN WALKING [None]
  - MOBILITY DECREASED [None]
